FAERS Safety Report 23237856 (Version 1)
Quarter: 2023Q4

REPORT INFORMATION
  Report Type: Spontaneous
  Country: CA (occurrence: CA)
  Receive Date: 20231128
  Receipt Date: 20231128
  Transmission Date: 20240110
  Serious: Yes (Other)
  Sender: FDA-Public Use
  Company Number: CA-CELLTRION INC.-2022CA001951

PATIENT

DRUGS (8)
  1. INFLECTRA [Suspect]
     Active Substance: INFLIXIMAB-DYYB
     Indication: Crohn^s disease
     Dosage: 5 MG/KG, ON WEEK 0,2,6 THEN EVERY 8 WEEKS
     Route: 042
     Dates: start: 20220124, end: 20220124
  2. INFLECTRA [Suspect]
     Active Substance: INFLIXIMAB-DYYB
     Dosage: 5 MG/KG, ON WEEK 0,2,6 THEN EVERY 8 WEEKS
     Route: 042
     Dates: start: 20220209
  3. INFLECTRA [Suspect]
     Active Substance: INFLIXIMAB-DYYB
     Dosage: 5 MG/KG, ON WEEK 0,2,6 THEN EVERY 8 WEEKS
     Route: 042
     Dates: start: 20220629, end: 20220629
  4. INFLECTRA [Suspect]
     Active Substance: INFLIXIMAB-DYYB
     Dosage: 5 MG/KG, ON WEEK 0,2,6 THEN EVERY 8 WEEKS
     Route: 042
     Dates: start: 20220824, end: 20220824
  5. INFLECTRA [Suspect]
     Active Substance: INFLIXIMAB-DYYB
     Dosage: 5 MG/KG, ON WEEK 0,2,6 THEN EVERY 8 WEEKS
     Route: 042
     Dates: start: 20221019, end: 20221019
  6. INFLECTRA [Suspect]
     Active Substance: INFLIXIMAB-DYYB
     Dosage: 5 MG/KG, ON WEEK 0,2,6 THEN EVERY 8 WEEKS
     Route: 042
     Dates: start: 20230922
  7. INFLECTRA [Suspect]
     Active Substance: INFLIXIMAB-DYYB
     Dosage: 5 MG/KG (300MG), ON WEEK 0,2,6 THEN EVERY 8 WEEKS
     Route: 042
     Dates: start: 20231117
  8. CHOLECALCIFEROL [Concomitant]
     Active Substance: CHOLECALCIFEROL
     Dosage: UNK

REACTIONS (8)
  - Haematochezia [Recovered/Resolved]
  - Palpitations [Unknown]
  - Fatigue [Unknown]
  - Hypotension [Unknown]
  - Blood pressure decreased [Recovered/Resolved]
  - Abdominal pain [Recovered/Resolved]
  - Off label use [Unknown]
  - Intentional product use issue [Unknown]

NARRATIVE: CASE EVENT DATE: 20220101
